FAERS Safety Report 13586049 (Version 3)
Quarter: 2017Q3

REPORT INFORMATION
  Report Type: Spontaneous
  Country: US (occurrence: US)
  Receive Date: 20170526
  Receipt Date: 20170727
  Transmission Date: 20171127
  Serious: Yes (Disabling, Other)
  Sender: FDA-Public Use
  Company Number: US-SAOL THERAPEUTICS-2016SAO00453

PATIENT
  Age: 55 Year
  Sex: Female

DRUGS (1)
  1. LIORESAL [Suspect]
     Active Substance: BACLOFEN
     Indication: MUSCLE SPASTICITY
     Dosage: 143 UNK, UNK
     Route: 037

REACTIONS (12)
  - Muscular weakness [Unknown]
  - Nausea [Unknown]
  - Gait inability [Not Recovered/Not Resolved]
  - Therapeutic response decreased [Unknown]
  - Fall [Unknown]
  - Malaise [Unknown]
  - Overdose [Unknown]
  - Joint injury [Unknown]
  - Pain [Unknown]
  - Loss of personal independence in daily activities [Unknown]
  - Dizziness [Unknown]
  - Muscle spasticity [Unknown]

NARRATIVE: CASE EVENT DATE: 20160129
